FAERS Safety Report 23159516 (Version 1)
Quarter: 2023Q4

REPORT INFORMATION
  Report Type: Report from Study
  Country: JP (occurrence: JP)
  Receive Date: 20231108
  Receipt Date: 20231108
  Transmission Date: 20240110
  Serious: Yes (Other)
  Sender: FDA-Public Use
  Company Number: JP-OTSUKA-2023_028549AA

PATIENT
  Age: 29 Year
  Sex: Male

DRUGS (15)
  1. AJOVY [Suspect]
     Active Substance: FREMANEZUMAB-VFRM
     Indication: Migraine
     Dosage: 225MG/SHOT
     Route: 058
     Dates: start: 20230718, end: 20230718
  2. AJOVY [Suspect]
     Active Substance: FREMANEZUMAB-VFRM
     Dosage: 225MG/SHOT
     Route: 058
     Dates: start: 20221031, end: 20221031
  3. AJOVY [Suspect]
     Active Substance: FREMANEZUMAB-VFRM
     Dosage: 225MG/SHOT
     Route: 058
     Dates: start: 20221128, end: 20221128
  4. AJOVY [Suspect]
     Active Substance: FREMANEZUMAB-VFRM
     Dosage: 225MG/SHOT
     Route: 058
     Dates: start: 20221227, end: 20221227
  5. AJOVY [Suspect]
     Active Substance: FREMANEZUMAB-VFRM
     Dosage: 225MG/SHOT
     Route: 058
     Dates: start: 20230128, end: 20230128
  6. AJOVY [Suspect]
     Active Substance: FREMANEZUMAB-VFRM
     Dosage: 225MG/SHOT
     Route: 058
     Dates: start: 20230224, end: 20230224
  7. AJOVY [Suspect]
     Active Substance: FREMANEZUMAB-VFRM
     Dosage: 225MG/SHOT
     Route: 058
     Dates: start: 20230324, end: 20230324
  8. AJOVY [Suspect]
     Active Substance: FREMANEZUMAB-VFRM
     Dosage: 225MG/SHOT
     Route: 058
     Dates: start: 20230515, end: 20230515
  9. AJOVY [Suspect]
     Active Substance: FREMANEZUMAB-VFRM
     Dosage: 225MG/SHOT
     Route: 058
     Dates: start: 20230616, end: 20230616
  10. VALPROATE SODIUM [Concomitant]
     Active Substance: VALPROATE SODIUM
     Indication: Migraine
     Dosage: 400 MILLIGRAM DAILY;
     Route: 048
     Dates: end: 20221128
  11. DIPHENIDOL HYDROCHLORIDE [Concomitant]
     Active Substance: DIPHENIDOL HYDROCHLORIDE
     Indication: Migraine
     Dosage: 1 DOSAGE FORMS DAILY;
     Route: 048
  12. METOCLOPRAMIDE [Concomitant]
     Active Substance: METOCLOPRAMIDE
     Indication: Migraine
     Dosage: 1 DOSAGE FORMS DAILY;
     Route: 048
  13. HERBALS [Concomitant]
     Active Substance: HERBALS
     Indication: Migraine
     Dosage: 2.5 GRAM DAILY; AS-NEEDED
     Route: 048
  14. HERBALS [Concomitant]
     Active Substance: HERBALS
     Indication: Migraine
     Dosage: 2.5 GRAM DAILY; AS-NEEDED
     Route: 048
  15. REYVOW [Concomitant]
     Active Substance: LASMIDITAN
     Indication: Migraine
     Dosage: 50 MILLIGRAM DAILY;
     Route: 048

REACTIONS (2)
  - Condition aggravated [Unknown]
  - Inappropriate schedule of product administration [Unknown]
